FAERS Safety Report 6572299-7 (Version None)
Quarter: 2010Q1

REPORT INFORMATION
  Report Type: 
  Country: None (occurrence: None)
  Receive Date: 20100205
  Receipt Date: 20100128
  Transmission Date: 20100710
  Serious: Yes (Other)
  Sender: FDA-Public Use
  Company Number: US-B.I. PHARMACEUTICALS,INC./RIDGEFIELD-2009-BP-10730BP

PATIENT
  Age: 54 Year
  Sex: Male
  Weight: 67.13 kg

DRUGS (3)
  1. VIRAMUNE [Suspect]
     Indication: HIV INFECTION
     Dosage: 400 MG
     Dates: end: 20090826
  2. WELLBUTRIN [Concomitant]
     Dosage: 150 MG
     Dates: start: 20000601, end: 20090526
  3. WELLBUTRIN [Concomitant]
     Dosage: 150 MG
     Dates: start: 20000601, end: 20090526

REACTIONS (4)
  - HEPATOTOXICITY [None]
  - LIVER FUNCTION TEST ABNORMAL [None]
  - PYREXIA [None]
  - RASH [None]
